FAERS Safety Report 7532721-6 (Version None)
Quarter: 2011Q2

REPORT INFORMATION
  Report Type: 
  Country: None (occurrence: None)
  Receive Date: 20110608
  Receipt Date: 20110531
  Transmission Date: 20111010
  Serious: Yes (Other)
  Sender: FDA-Public Use
  Company Number: A0925582A

PATIENT
  Age: 55 Year
  Sex: Female

DRUGS (14)
  1. HYDROCODONE BITARTRATE [Concomitant]
  2. LORAZEPAM [Concomitant]
  3. NEXIUM [Concomitant]
  4. HERCEPTIN [Concomitant]
  5. FISH OIL [Concomitant]
  6. CALCIUM CARBONATE [Concomitant]
  7. TYKERB [Suspect]
     Indication: BREAST CANCER
     Dosage: 1250MG AT NIGHT
     Route: 048
     Dates: start: 20090101
  8. UNSPECIFIED MEDICATION [Concomitant]
  9. SERTRALINE HYDROCHLORIDE [Concomitant]
  10. XELODA [Suspect]
     Indication: BREAST CANCER
  11. MULTI-VITAMIN [Concomitant]
  12. ACIPHEX [Concomitant]
  13. VITAMIN TAB [Concomitant]
  14. UNSPECIFIED MEDICATION [Concomitant]

REACTIONS (16)
  - WHEEZING [None]
  - ABDOMINAL PAIN UPPER [None]
  - NAIL INFECTION [None]
  - ONYCHOCLASIS [None]
  - PRURITUS [None]
  - ACNE [None]
  - DIARRHOEA [None]
  - DYSPNOEA [None]
  - PALMAR-PLANTAR ERYTHRODYSAESTHESIA SYNDROME [None]
  - FATIGUE [None]
  - INGROWING NAIL [None]
  - RASH [None]
  - RED BLOOD CELL COUNT DECREASED [None]
  - HYPERAESTHESIA [None]
  - CONSTIPATION [None]
  - NAIL DISORDER [None]
